FAERS Safety Report 22340327 (Version 1)
Quarter: 2023Q2

REPORT INFORMATION
  Report Type: Report from Study
  Country: US (occurrence: US)
  Receive Date: 20230518
  Receipt Date: 20230518
  Transmission Date: 20230722
  Serious: Yes (Other)
  Sender: FDA-Public Use
  Company Number: US-JAZZ PHARMACEUTICALS-2023-US-006888

PATIENT
  Sex: Female

DRUGS (5)
  1. XYREM [Suspect]
     Active Substance: SODIUM OXYBATE
     Indication: Narcolepsy
  2. XYREM [Suspect]
     Active Substance: SODIUM OXYBATE
     Indication: Cataplexy
  3. XYREM [Suspect]
     Active Substance: SODIUM OXYBATE
     Indication: Somnolence
  4. TRAMADOL [Suspect]
     Active Substance: TRAMADOL
     Indication: Product used for unknown indication
  5. PERCOCET [Suspect]
     Active Substance: ACETAMINOPHEN\OXYCODONE HYDROCHLORIDE
     Indication: Product used for unknown indication

REACTIONS (12)
  - Eye operation [Unknown]
  - Neuropathy peripheral [Unknown]
  - Sjogren^s syndrome [Unknown]
  - Autoimmune thyroiditis [Unknown]
  - Hepatic steatosis [Unknown]
  - Drug hypersensitivity [Unknown]
  - Restless legs syndrome [Unknown]
  - Sleep apnoea syndrome [Unknown]
  - Fibromyalgia [Unknown]
  - Mitral valve prolapse [Unknown]
  - Insomnia [Unknown]
  - Hypertension [Unknown]
